FAERS Safety Report 18926495 (Version 1)
Quarter: 2021Q1

REPORT INFORMATION
  Report Type: Spontaneous
  Country: US (occurrence: US)
  Receive Date: 20210223
  Receipt Date: 20210223
  Transmission Date: 20210420
  Serious: Yes (Hospitalization)
  Sender: FDA-Public Use
  Company Number: US-PFIZER INC-2021155113

PATIENT

DRUGS (1)
  1. LIPITOR [Suspect]
     Active Substance: ATORVASTATIN CALCIUM
     Indication: BLOOD CHOLESTEROL ABNORMAL
     Dosage: UNK

REACTIONS (6)
  - Oral disorder [Recovered/Resolved]
  - Muscle disorder [Recovered/Resolved]
  - Hypersensitivity [Recovered/Resolved]
  - Cognitive disorder [Recovered/Resolved]
  - Neuromuscular blockade [Recovered/Resolved]
  - Gastrointestinal disorder [Recovered/Resolved]
